FAERS Safety Report 8773172 (Version 2)
Quarter: 2012Q4

REPORT INFORMATION
  Report Type: 
  Country: SE (occurrence: SE)
  Receive Date: 20120907
  Receipt Date: 20120914
  Transmission Date: 20130627
  Serious: Yes (Other)
  Sender: FDA-Public Use
  Company Number: SE-ROCHE-1107285

PATIENT
  Age: 28 Year
  Sex: Female

DRUGS (1)
  1. ROACCUTAN [Suspect]
     Indication: ACNE
     Route: 065
     Dates: start: 2001, end: 200209

REACTIONS (2)
  - Haematoma [Recovered/Resolved with Sequelae]
  - Encephalomyelitis [Recovered/Resolved with Sequelae]
